FAERS Safety Report 25334996 (Version 2)
Quarter: 2025Q2

REPORT INFORMATION
  Report Type: Spontaneous
  Country: US (occurrence: US)
  Receive Date: 20250520
  Receipt Date: 20250613
  Transmission Date: 20250716
  Serious: No
  Sender: TEVA
  Company Number: US-TEVA-VS-3330984

PATIENT
  Age: 35 Year
  Sex: Female

DRUGS (1)
  1. ADDERALL [Suspect]
     Active Substance: AMPHETAMINE ASPARTATE\AMPHETAMINE SULFATE\DEXTROAMPHETAMINE SACCHARATE\DEXTROAMPHETAMINE SULFATE
     Indication: Product used for unknown indication
     Route: 048
     Dates: start: 20250422, end: 20250527

REACTIONS (4)
  - Drug ineffective [Unknown]
  - Suspected counterfeit product [Unknown]
  - Product formulation issue [Unknown]
  - Product label issue [Unknown]

NARRATIVE: CASE EVENT DATE: 20250101
